FAERS Safety Report 8770367 (Version 1)
Quarter: 2012Q4

REPORT INFORMATION
  Report Type: 
  Country: US (occurrence: US)
  Receive Date: 20120906
  Receipt Date: 20120906
  Transmission Date: 20130627
  Serious: No
  Sender: FDA-Public Use
  Company Number: US-ENDO PHARMACEUTICALS INC.-OPCR20121817

PATIENT
  Age: 42 Year
  Sex: Male

DRUGS (3)
  1. OPANA ER 30MG [Suspect]
     Indication: PAIN
     Route: 048
     Dates: start: 20120810, end: 20120815
  2. OXYMORPHONE [Concomitant]
     Indication: PAIN
     Dosage: UNKNOWN
     Route: 065
  3. OPANA ER 30MG [Concomitant]
     Indication: PAIN
     Route: 048
     Dates: start: 2011, end: 201208

REACTIONS (4)
  - Intestinal obstruction [Recovered/Resolved]
  - Abdominal discomfort [Recovered/Resolved]
  - Constipation [Recovered/Resolved]
  - Drug effect decreased [Recovered/Resolved]
